FAERS Safety Report 4804431-7 (Version None)
Quarter: 2005Q4

REPORT INFORMATION
  Report Type: 
  Country: None (occurrence: None)
  Receive Date: 20051020
  Receipt Date: 20050815
  Transmission Date: 20060501
  Serious: Yes (Hospitalization)
  Sender: FDA-Public Use
  Company Number: SE-GLAXOSMITHKLINE-B0392093A

PATIENT
  Age: 61 Year
  Sex: Male

DRUGS (3)
  1. AVANDAMET [Suspect]
     Route: 048
     Dates: start: 20050530
  2. METFORMIN [Concomitant]
  3. INSULIN [Concomitant]

REACTIONS (5)
  - CHEST PAIN [None]
  - DIZZINESS [None]
  - NAUSEA [None]
  - SYNCOPE [None]
  - VOMITING [None]
